FAERS Safety Report 9014169 (Version 1)
Quarter: 2013Q1

REPORT INFORMATION
  Report Type: Spontaneous
  Country: GB (occurrence: CA)
  Receive Date: 20130115
  Receipt Date: 20130115
  Transmission Date: 20140127
  Serious: Yes (Hospitalization)
  Sender: FDA-Public Use
  Company Number: PHHY2013CA002369

PATIENT
  Age: 60 Year
  Sex: Female

DRUGS (9)
  1. DOCETAXEL [Suspect]
     Indication: BREAST CANCER
     Dosage: 134 MG, ONE IN EVERY THREE WEEKS
     Route: 042
     Dates: start: 20011228, end: 20020320
  2. CISPLATIN [Suspect]
     Indication: BREAST CANCER
     Dosage: 134 MG, ONCE IN EERY THREE WEEKS
     Route: 042
     Dates: start: 20011228, end: 20020206
  3. CARBOPLATIN [Suspect]
     Indication: BREAST CANCER
     Dosage: 549 MG, ONCE IN EVERY THREE WEEKS
     Route: 042
     Dates: start: 20020227, end: 20020227
  4. CARBOPLATIN [Suspect]
     Dosage: 564 UNK, UNK
     Route: 042
  5. HERCEPTIN [Suspect]
     Indication: BREAST CANCER
     Dosage: 292 MG, UNK
     Route: 042
     Dates: start: 20011227, end: 20011227
  6. ZOCOR [Concomitant]
  7. ZOLOFT [Concomitant]
  8. HYDROCHLOROTHIAZIDE [Concomitant]
  9. BENALAPRIL [Concomitant]

REACTIONS (14)
  - Amnesia [Recovered/Resolved]
  - Acoustic stimulation tests abnormal [Recovered/Resolved]
  - Speech disorder [Recovered/Resolved]
  - Neuropathy peripheral [Recovered/Resolved]
  - Neuromyopathy [Recovered/Resolved with Sequelae]
  - Ataxia [Recovered/Resolved]
  - Asthenia [Recovered/Resolved]
  - Gait disturbance [Recovered/Resolved]
  - Areflexia [Recovered/Resolved]
  - Febrile neutropenia [Recovered/Resolved]
  - Headache [Recovered/Resolved]
  - Nausea [Recovered/Resolved]
  - Vomiting [Recovered/Resolved]
  - Diarrhoea [Recovered/Resolved]
